FAERS Safety Report 4692485-0 (Version None)
Quarter: 2005Q2

REPORT INFORMATION
  Report Type: 
  Country: None (occurrence: None)
  Receive Date: 20050613
  Receipt Date: 20050225
  Transmission Date: 20051028
  Serious: No
  Sender: FDA-Public Use
  Company Number: 2005-00268

PATIENT
  Sex: Female

DRUGS (2)
  1. VELCADE [Suspect]
     Dosage: SEE IMAGE
     Route: 042
     Dates: start: 20050101
  2. VELCADE [Suspect]
     Dosage: SEE IMAGE
     Route: 042
     Dates: start: 20050101

REACTIONS (1)
  - PAIN IN EXTREMITY [None]
